FAERS Safety Report 9417157 (Version 3)
Quarter: 2013Q3

REPORT INFORMATION
  Report Type: Spontaneous
  Country: BE (occurrence: BE)
  Receive Date: 20130724
  Receipt Date: 20130830
  Transmission Date: 20140515
  Serious: Yes (Death)
  Sender: FDA-Public Use
  Company Number: BE-B.I. PHARMACEUTICALS,INC./RIDGEFIELD-2013-BL-00355BL

PATIENT
  Age: 81 Year
  Sex: Female

DRUGS (10)
  1. PRADAXA [Suspect]
     Indication: ATRIAL FIBRILLATION
     Dosage: 220 MG
     Route: 048
     Dates: start: 201210, end: 20130704
  2. PROLIA [Concomitant]
  3. ZOCOR [Concomitant]
  4. VENLAFAXINE [Concomitant]
  5. PANTOMED [Concomitant]
     Dosage: 40 MG
     Route: 048
  6. L-THYROXINE [Concomitant]
     Dosage: 100 MCG
     Route: 048
  7. BETAHISTINE [Concomitant]
     Dosage: 48 MG
     Route: 048
  8. SIPRALEXA [Concomitant]
     Dosage: 10 MG
     Route: 048
  9. EFEXOR [Concomitant]
     Dosage: 10 MG
     Route: 048
  10. STILNOCT [Concomitant]
     Dosage: 10 MG
     Route: 048

REACTIONS (1)
  - Large intestine perforation [Fatal]
